FAERS Safety Report 6566787-7 (Version None)
Quarter: 2010Q1

REPORT INFORMATION
  Report Type: 
  Country: None (occurrence: None)
  Receive Date: 20100202
  Receipt Date: 20100119
  Transmission Date: 20100710
  Serious: Yes (Other)
  Sender: FDA-Public Use
  Company Number: TR-WATSON-2010-00761

PATIENT
  Age: 2 Hour
  Sex: Female

DRUGS (1)
  1. CITALOPRAM HYDROBROMIDE [Suspect]
     Indication: MAJOR DEPRESSION
     Dosage: 20 - 30  MG, DAILY
     Route: 064

REACTIONS (3)
  - CLITORAL ENGORGEMENT [None]
  - DRUG EXPOSURE DURING PREGNANCY [None]
  - PRIAPISM [None]
